FAERS Safety Report 13279016 (Version 1)
Quarter: 2017Q1

REPORT INFORMATION
  Report Type: Spontaneous
  Country: US (occurrence: US)
  Receive Date: 20170228
  Receipt Date: 20170228
  Transmission Date: 20170428
  Serious: No
  Sender: FDA-Public Use
  Company Number: US-ALLERGAN-1000087095

PATIENT
  Age: 39 Year
  Sex: Female

DRUGS (1)
  1. SAVELLA [Suspect]
     Active Substance: MILNACIPRAN HYDROCHLORIDE
     Indication: FIBROMYALGIA
     Dosage: 25 MG, QD
     Route: 048
     Dates: start: 2016, end: 20160823

REACTIONS (7)
  - Drug ineffective [Unknown]
  - Infertility female [Unknown]
  - Hormone level abnormal [Unknown]
  - Off label use [Unknown]
  - Nausea [Recovered/Resolved]
  - Menstrual disorder [Unknown]
  - Menstruation irregular [Unknown]

NARRATIVE: CASE EVENT DATE: 2016
